FAERS Safety Report 25944701 (Version 1)
Quarter: 2025Q4

REPORT INFORMATION
  Report Type: Spontaneous
  Country: US (occurrence: None)
  Receive Date: 20251021
  Receipt Date: 20251021
  Transmission Date: 20260117
  Serious: Yes (Hospitalization)
  Sender: FDA-CTU
  Company Number: None

PATIENT
  Age: 85 Year
  Sex: Male

DRUGS (11)
  1. VYNDAMAX [Suspect]
     Active Substance: TAFAMIDIS
     Indication: Restrictive cardiomyopathy
     Dosage: FREQUENCY : DAILY;?
     Route: 048
     Dates: start: 20241023
  2. ASPIRIN [Concomitant]
     Active Substance: ASPIRIN
  3. ATORVASTATIN [Concomitant]
     Active Substance: ATORVASTATIN
  4. CLOPIDOGREL [Concomitant]
     Active Substance: CLOPIDOGREL BISULFATE
  5. COENZYME Q10 [Concomitant]
     Active Substance: DIETARY SUPPLEMENT\UBIDECARENONE
  6. DONEPEZIL [Concomitant]
     Active Substance: DONEPEZIL
  7. FINASTERIDE [Concomitant]
     Active Substance: FINASTERIDE
  8. LANTUS SOLOS [Concomitant]
  9. MEMANTINE [Concomitant]
     Active Substance: MEMANTINE
  10. METOPROL SUC [Concomitant]
  11. MOUNJARO [Concomitant]
     Active Substance: TIRZEPATIDE

REACTIONS (2)
  - Internal haemorrhage [None]
  - Intentional dose omission [None]

NARRATIVE: CASE EVENT DATE: 20250923
